FAERS Safety Report 6681971-X (Version None)
Quarter: 2010Q2

REPORT INFORMATION
  Report Type: 
  Country: None (occurrence: None)
  Receive Date: 20100407
  Receipt Date: 20100331
  Transmission Date: 20101027
  Serious: Yes (Death, Hospitalization)
  Sender: FDA-Public Use
  Company Number: 2010022241

PATIENT
  Sex: Female
  Weight: 49.8957 kg

DRUGS (23)
  1. ZEMAIRA [Suspect]
     Dosage: (125 MG, 125 MG WEEKLY INTRAVENOUS), (60 MG/KG INTRAVENOUS), (INTRAVENOUS)
     Route: 042
     Dates: start: 20041111
  2. ZEMAIRA [Suspect]
     Dosage: (125 MG, 125 MG WEEKLY INTRAVENOUS), (60 MG/KG INTRAVENOUS), (INTRAVENOUS)
     Route: 042
     Dates: start: 20091028
  3. ANTIBIOTIC (ANTIBIOTICS) [Suspect]
  4. PREDNISONE TAB [Concomitant]
  5. OSCAL (CALCIUM CARBONATE) [Concomitant]
  6. ZYRTEC [Concomitant]
  7. LORAZEPAM [Concomitant]
  8. ALBUTEROL [Concomitant]
  9. FLONASE [Concomitant]
  10. SPIRONOLACTONE [Concomitant]
  11. LEVOTHYROXINE SODIUM [Concomitant]
  12. SPIRIVA [Concomitant]
  13. MYCELEX [Concomitant]
  14. ADVAIR DISKUS 100/50 [Concomitant]
  15. IBUPROFEN [Concomitant]
  16. TYLENOL [Concomitant]
  17. ROXICODONE [Concomitant]
  18. LATAIRIS (AMBRISENTAN) [Concomitant]
  19. SINGULAIR [Concomitant]
  20. ZEGERID (OMEPRAZOLE) [Concomitant]
  21. BACTRIM [Concomitant]
  22. REMODULIN (TREPROSTINOL) [Concomitant]
  23. REVATIO [Concomitant]

REACTIONS (1)
  - ANAPHYLACTIC REACTION [None]
